FAERS Safety Report 4702246-1 (Version None)
Quarter: 2005Q2

REPORT INFORMATION
  Report Type: 
  Country: None (occurrence: None)
  Receive Date: 20050629
  Receipt Date: 20050311
  Transmission Date: 20051028
  Serious: No
  Sender: FDA-Public Use
  Company Number: US-BRISTOL-MYERS SQUIBB COMPANY-12895264

PATIENT
  Sex: Male

DRUGS (3)
  1. VIDEX [Suspect]
  2. ATAZANAVIR [Suspect]
  3. VIREAD [Suspect]

REACTIONS (1)
  - ERECTILE DYSFUNCTION [None]
